FAERS Safety Report 7247839-5 (Version None)
Quarter: 2011Q1

REPORT INFORMATION
  Report Type: 
  Country: None (occurrence: None)
  Receive Date: 20110127
  Receipt Date: 20110113
  Transmission Date: 20110831
  Serious: Yes (Hospitalization)
  Sender: FDA-Public Use
  Company Number: MX-ELI_LILLY_AND_COMPANY-MX201101003305

PATIENT
  Age: 85 Year
  Sex: Male
  Weight: 47 kg

DRUGS (3)
  1. FORTEO [Suspect]
     Indication: BONE DECALCIFICATION
     Dosage: 20 UG, DAILY (1/D)
     Route: 058
     Dates: start: 20090101, end: 20101021
  2. FORTEO [Suspect]
     Dosage: UNK, UNKNOWN
     Route: 065
     Dates: start: 20110113
  3. BUPRENORPHINE [Concomitant]
     Indication: PAIN
     Dosage: 0.2 MG, DAILY (1/D)
     Route: 065
     Dates: start: 20101022

REACTIONS (2)
  - OFF LABEL USE [None]
  - SURGERY [None]
